FAERS Safety Report 22910340 (Version 2)
Quarter: 2023Q4

REPORT INFORMATION
  Report Type: Spontaneous
  Country: CA (occurrence: CA)
  Receive Date: 20230906
  Receipt Date: 20231006
  Transmission Date: 20240110
  Serious: Yes (Other)
  Sender: FDA-Public Use
  Company Number: CA-SA-2022SA085183

PATIENT
  Age: 70 Year
  Sex: Male

DRUGS (9)
  1. FAMOTIDINE [Suspect]
     Active Substance: FAMOTIDINE
     Indication: Dyspepsia
     Dosage: DOSE DESCRIPTION : 40 MG
     Route: 048
  2. ZOPICLONE [Suspect]
     Active Substance: ZOPICLONE
     Indication: Insomnia
     Dosage: DOSE DESCRIPTION : 7.5 MG, QD
     Route: 065
  3. MORPHINE SULFATE [Suspect]
     Active Substance: MORPHINE SULFATE
     Indication: Product used for unknown indication
     Dosage: DOSE DESCRIPTION : UNK
     Route: 065
  4. MONTELUKAST [Suspect]
     Active Substance: MONTELUKAST SODIUM
     Indication: Asthma
     Dosage: DOSE DESCRIPTION : 10 MG, QD
     Route: 065
  5. DESLORATADINE [Suspect]
     Active Substance: DESLORATADINE
     Indication: Product used for unknown indication
     Dosage: DOSE DESCRIPTION : UNK
     Route: 048
  6. ACETAMINOPHEN\OXYCODONE HYDROCHLORIDE [Suspect]
     Active Substance: ACETAMINOPHEN\OXYCODONE HYDROCHLORIDE
     Indication: Product used for unknown indication
     Dosage: DOSE DESCRIPTION : UNK
     Route: 065
  7. SIMVASTATIN [Suspect]
     Active Substance: SIMVASTATIN
     Dosage: UNK
     Route: 065
  8. DOXEPIN [Concomitant]
     Active Substance: DOXEPIN
     Indication: Product used for unknown indication
     Dosage: DOSE DESCRIPTION : 1 DF, QD
     Route: 048
  9. ELIQUIS [Concomitant]
     Active Substance: APIXABAN
     Indication: Product used for unknown indication
     Dosage: DOSE DESCRIPTION : 2 DF, QD
     Route: 048

REACTIONS (14)
  - Arrhythmia [Unknown]
  - Blood immunoglobulin E increased [Unknown]
  - Disease prodromal stage [Unknown]
  - Lip swelling [Unknown]
  - Oral dysaesthesia [Unknown]
  - Pneumonia [Unknown]
  - Swelling face [Unknown]
  - Swollen tongue [Unknown]
  - White blood cell count increased [Unknown]
  - Paraesthesia oral [Unknown]
  - Idiopathic angioedema [Unknown]
  - Pruritus [Unknown]
  - Bronchoscopy abnormal [Unknown]
  - Full blood count increased [Unknown]
